FAERS Safety Report 24600381 (Version 2)
Quarter: 2025Q1

REPORT INFORMATION
  Report Type: Report from Study
  Country: US (occurrence: US)
  Receive Date: 20241110
  Receipt Date: 20250301
  Transmission Date: 20250409
  Serious: No
  Sender: SANOFI AVENTIS
  Company Number: US-SA-2024SA320170

PATIENT
  Age: 83 Year
  Sex: Female

DRUGS (17)
  1. DUPILUMAB [Suspect]
     Active Substance: DUPILUMAB
     Indication: Dermatitis atopic
     Route: 058
  2. DUPILUMAB [Suspect]
     Active Substance: DUPILUMAB
     Dosage: 200 MG, QOW
     Route: 058
  3. DUPILUMAB [Suspect]
     Active Substance: DUPILUMAB
     Dosage: 300 MG, QOW
     Route: 058
     Dates: start: 20241122
  4. MINERALS\VITAMINS [Concomitant]
     Active Substance: MINERALS\VITAMINS
  5. TEGRETOL [Concomitant]
     Active Substance: CARBAMAZEPINE
  6. ESTRIOL [Concomitant]
     Active Substance: ESTRIOL
  7. Thermotabs [Concomitant]
  8. SYNTHROID [Concomitant]
     Active Substance: LEVOTHYROXINE SODIUM
  9. IRON [Concomitant]
     Active Substance: IRON
  10. CLOBETASOL [Concomitant]
     Active Substance: CLOBETASOL
  11. WELLBUTRIN [Concomitant]
     Active Substance: BUPROPION HYDROCHLORIDE
  12. LISINOPRIL [Concomitant]
     Active Substance: LISINOPRIL
  13. ATORVASTATIN [Concomitant]
     Active Substance: ATORVASTATIN
  14. VITAMIN B12 [Concomitant]
     Active Substance: CYANOCOBALAMIN
  15. HYALURONIC ACID [Concomitant]
     Active Substance: HYALURONIC ACID
  16. KEYTRUDA [Concomitant]
     Active Substance: PEMBROLIZUMAB
  17. CALCIUM CITRATE [Concomitant]
     Active Substance: CALCIUM CITRATE

REACTIONS (1)
  - Off label use [Unknown]
